FAERS Safety Report 4487111-X (Version None)
Quarter: 2004Q4

REPORT INFORMATION
  Report Type: 
  Country: None (occurrence: None)
  Receive Date: 20041027
  Receipt Date: 20041018
  Transmission Date: 20050328
  Serious: Yes (Other)
  Sender: FDA-Public Use
  Company Number: AU-GLAXOSMITHKLINE-B0349215A

PATIENT
  Sex: Male

DRUGS (1)
  1. ZOVIRAX [Suspect]
     Indication: CONJUNCTIVITIS VIRAL
     Dosage: 2CM FIVE TIMES PER DAY
     Route: 061
     Dates: start: 20040913

REACTIONS (3)
  - DRUG TOXICITY [None]
  - KERATITIS [None]
  - THERAPY NON-RESPONDER [None]
